FAERS Safety Report 16123000 (Version 1)
Quarter: 2019Q1

REPORT INFORMATION
  Report Type: Spontaneous
  Country: US (occurrence: US)
  Receive Date: 20190327
  Receipt Date: 20190327
  Transmission Date: 20190418
  Serious: No
  Sender: FDA-Public Use
  Company Number: US-GLAXOSMITHKLINE-US2019GSK032132

PATIENT
  Sex: Female
  Weight: 73.94 kg

DRUGS (2)
  1. CARVEDILOL TABLET [Suspect]
     Active Substance: CARVEDILOL
     Indication: ATRIAL FIBRILLATION
     Dosage: 12.5 MG, BID
     Dates: start: 201611, end: 201804
  2. CARVEDILOL TABLET [Suspect]
     Active Substance: CARVEDILOL
     Dosage: 3 MG, UNK

REACTIONS (1)
  - Drug ineffective [Unknown]
